FAERS Safety Report 11605260 (Version 1)
Quarter: 2015Q4

REPORT INFORMATION
  Report Type: Spontaneous
  Country: US (occurrence: None)
  Receive Date: 20151006
  Receipt Date: 20151006
  Transmission Date: 20160304
  Serious: Yes (Life-Threatening, Other)
  Sender: FDA-Public Use
  Company Number: None

PATIENT
  Age: 49 Year
  Sex: Female
  Weight: 78.02 kg

DRUGS (14)
  1. IBUPROFEN. [Concomitant]
     Active Substance: IBUPROFEN
  2. OXYCOD/ACETAM (PERCOCET) [Concomitant]
  3. PROAIR HFA (ALBUTEROL SULFATE) [Concomitant]
  4. B2 RIBOFLAVIN [Concomitant]
  5. MAGNESIUM [Concomitant]
     Active Substance: MAGNESIUM
  6. DULCOLAX STOOL SOFTENER [Concomitant]
     Active Substance: DOCUSATE SODIUM
  7. METRONIDAZOLE (FLAGYL) [Concomitant]
  8. LISINOPRIL AND HYDROCHLOROTHIAZIDE [Concomitant]
     Active Substance: HYDROCHLOROTHIAZIDE\LISINOPRIL
  9. LORATADINE. [Concomitant]
     Active Substance: LORATADINE
  10. OXYCODONE 10MG NESHER PHARMACEUTICALS [Suspect]
     Active Substance: OXYCODONE
     Indication: HYSTERECTOMY
     Dosage: 1 OR 2 TABLETS
     Route: 048
     Dates: start: 20150923, end: 20151003
  11. CELEBREX [Concomitant]
     Active Substance: CELECOXIB
  12. COQ10 [Concomitant]
     Active Substance: UBIDECARENONE
  13. GABAPENTIN (NEURONTIN) [Concomitant]
  14. D3 [Concomitant]
     Active Substance: 25-HYDROXYCHOLECALCIFEROL, 5-TRANS-

REACTIONS (8)
  - Muscular weakness [None]
  - Dyspnoea [None]
  - Dysarthria [None]
  - Fall [None]
  - Altered state of consciousness [None]
  - Nausea [None]
  - Product label issue [None]
  - Paralysis [None]

NARRATIVE: CASE EVENT DATE: 20150925
